FAERS Safety Report 19245232 (Version 4)
Quarter: 2021Q4

REPORT INFORMATION
  Report Type: Report from Study
  Country: CA (occurrence: CA)
  Receive Date: 20210511
  Receipt Date: 20211111
  Transmission Date: 20220303
  Serious: Yes (Death, Hospitalization, Other)
  Sender: FDA-Public Use
  Company Number: CA-BOEHRINGERINGELHEIM-2020-BI-031308

PATIENT
  Age: 67 Year
  Sex: Male
  Weight: 77.1 kg

DRUGS (1)
  1. OFEV [Suspect]
     Active Substance: NINTEDANIB
     Indication: Idiopathic pulmonary fibrosis
     Route: 048
     Dates: start: 20180420, end: 20210802

REACTIONS (6)
  - Hip fracture [Fatal]
  - Cardiogenic shock [Fatal]
  - Hyperglycaemia [Recovered/Resolved]
  - Hypoxia [Unknown]
  - Diarrhoea [Recovered/Resolved]
  - Fall [Unknown]

NARRATIVE: CASE EVENT DATE: 20210328
